FAERS Safety Report 4700626-1 (Version None)
Quarter: 2005Q2

REPORT INFORMATION
  Report Type: 
  Country: None (occurrence: None)
  Receive Date: 20050627
  Receipt Date: 20050621
  Transmission Date: 20051028
  Serious: Yes (Other)
  Sender: FDA-Public Use
  Company Number: NL-MERCK-0506NLD00026

PATIENT
  Age: 37 Year
  Sex: Male

DRUGS (1)
  1. STROMECTOL [Suspect]
     Indication: PROPHYLAXIS
     Route: 048
     Dates: start: 20050516

REACTIONS (1)
  - MUSCLE RUPTURE [None]
